FAERS Safety Report 22979615 (Version 2)
Quarter: 2023Q4

REPORT INFORMATION
  Report Type: Spontaneous
  Country: US (occurrence: US)
  Receive Date: 20230925
  Receipt Date: 20231004
  Transmission Date: 20240110
  Serious: Yes (Hospitalization, Other)
  Sender: FDA-Public Use
  Company Number: US-UCBSA-2023046418

PATIENT
  Sex: Female

DRUGS (1)
  1. KEPPRA [Suspect]
     Active Substance: LEVETIRACETAM
     Indication: Epilepsy
     Dosage: UNK
     Route: 048
     Dates: start: 201504

REACTIONS (11)
  - Seizure [Not Recovered/Not Resolved]
  - Aura [Not Recovered/Not Resolved]
  - Memory impairment [Unknown]
  - Abdominal pain upper [Recovered/Resolved]
  - Insomnia [Not Recovered/Not Resolved]
  - Sleep deficit [Not Recovered/Not Resolved]
  - Speech sound disorder [Unknown]
  - Stress [Unknown]
  - Gait disturbance [Unknown]
  - Auditory disorder [Unknown]
  - Depression [Unknown]
